FAERS Safety Report 9657107 (Version 1)
Quarter: 2013Q4

REPORT INFORMATION
  Report Type: Report from Study
  Country: US (occurrence: US)
  Receive Date: 20131030
  Receipt Date: 20131030
  Transmission Date: 20140711
  Serious: Yes (Hospitalization, Other)
  Sender: FDA-Public Use
  Company Number: US-PURDUE-USA-2013-0107922

PATIENT
  Age: 64 Year
  Sex: Female

DRUGS (2)
  1. OXYCONTIN (NDA 22-272) [Suspect]
     Indication: PAIN
     Dosage: UNKNOWN
     Route: 048
     Dates: start: 201110
  2. OXYCONTIN (NDA 22-272) [Suspect]
     Indication: NEUROPATHY PERIPHERAL
     Dosage: 80 MG, Q12H
     Route: 048
     Dates: start: 20130926

REACTIONS (5)
  - Gastrointestinal injury [Unknown]
  - Road traffic accident [Unknown]
  - Contusion [Unknown]
  - Impaired driving ability [Unknown]
  - Pain [Unknown]
